FAERS Safety Report 13034864 (Version 1)
Quarter: 2016Q4

REPORT INFORMATION
  Report Type: Spontaneous
  Country: US (occurrence: US)
  Receive Date: 20161216
  Receipt Date: 20161216
  Transmission Date: 20170207
  Serious: No
  Sender: FDA-Public Use
  Company Number: US-AMGEN-USASP2016174760

PATIENT
  Age: 8 Year
  Sex: Male

DRUGS (4)
  1. CYCLOSPORINE. [Concomitant]
     Active Substance: CYCLOSPORINE
     Dosage: 6.2 MG/KG, QD
     Dates: start: 200304, end: 2004
  2. CYCLOSPORINE. [Concomitant]
     Active Substance: CYCLOSPORINE
     Dosage: 5.6 MG/KG, QD
     Dates: start: 200303, end: 200304
  3. ENBREL [Suspect]
     Active Substance: ETANERCEPT
     Indication: DERMATITIS ATOPIC
     Dosage: 25 MG, 2 TIMES/WK
     Route: 058
     Dates: start: 200401
  4. CYCLOSPORINE. [Concomitant]
     Active Substance: CYCLOSPORINE
     Dosage: 4 MG/KG, QD
     Dates: start: 200302, end: 200303

REACTIONS (3)
  - Dermatitis atopic [Unknown]
  - Alopecia [Unknown]
  - Off label use [Unknown]

NARRATIVE: CASE EVENT DATE: 200401
